FAERS Safety Report 6634509-7 (Version None)
Quarter: 2010Q1

REPORT INFORMATION
  Report Type: 
  Country: None (occurrence: None)
  Receive Date: 20100225
  Receipt Date: 20090202
  Transmission Date: 20100710
  Serious: Yes (Hospitalization)
  Sender: FDA-Public Use
  Company Number: US-JNJFOC-20080605631

PATIENT
  Age: 59 Year
  Sex: Female

DRUGS (13)
  1. IBUPROFEN [Suspect]
     Indication: DRUG USE FOR UNKNOWN INDICATION
  2. BETASERON [Concomitant]
  3. POTASSIUM (POTASSIUM) [Concomitant]
  4. TYLENOL (CAPLET) [Concomitant]
  5. AMANTADINE HCL [Concomitant]
  6. ASPIRIN 81 MG (ASPIRIN) [Concomitant]
  7. ULTRAM [Concomitant]
  8. XANAX [Concomitant]
  9. AMITIZA (LAXATIVES) [Concomitant]
  10. ACIPHEX [Concomitant]
  11. BACLOFEN [Concomitant]
  12. PREDISONE (PREDNISONE) [Concomitant]
  13. MAGNESIUM (MAGNESIUM) [Concomitant]

REACTIONS (1)
  - DUODENAL ULCER [None]
